FAERS Safety Report 23769148 (Version 1)
Quarter: 2024Q2

REPORT INFORMATION
  Report Type: Report from Study
  Country: DE (occurrence: DE)
  Receive Date: 20240422
  Receipt Date: 20240422
  Transmission Date: 20240717
  Serious: Yes (Hospitalization, Other)
  Sender: FDA-Public Use
  Company Number: DE-BRISTOL-MYERS SQUIBB COMPANY-2023-056865

PATIENT
  Age: 72 Year
  Sex: Female

DRUGS (3)
  1. METHOTREXATE SODIUM [Suspect]
     Active Substance: METHOTREXATE SODIUM
     Dosage: 15 MG, WEEKLY
  2. ORENCIA [Suspect]
     Active Substance: ABATACEPT
     Indication: Rheumatoid arthritis
     Dosage: 125 MG, WEEKLY
     Route: 058
  3. CIMZIA [Suspect]
     Active Substance: CERTOLIZUMAB PEGOL
     Dosage: UNK

REACTIONS (7)
  - Pelvi-ureteric obstruction [Recovered/Resolved]
  - Urinary tract infection [Recovered/Resolved]
  - Cataract [Unknown]
  - Optic nerve disorder [Unknown]
  - Blepharitis [Unknown]
  - Conjunctivitis [Unknown]
  - Diastolic dysfunction [Unknown]

NARRATIVE: CASE EVENT DATE: 20220802
